FAERS Safety Report 24767800 (Version 1)
Quarter: 2024Q4

REPORT INFORMATION
  Report Type: Spontaneous
  Country: US (occurrence: US)
  Receive Date: 20241223
  Receipt Date: 20241223
  Transmission Date: 20250115
  Serious: Yes (Hospitalization)
  Sender: INTRA-CELLULAR THERAPIES
  Company Number: US-INTRA-CELLULAR THERAPIES, INC.-2024ICT02021

PATIENT
  Sex: Male
  Weight: 81.633 kg

DRUGS (2)
  1. CAPLYTA [Suspect]
     Active Substance: LUMATEPERONE
     Indication: Bipolar II disorder
     Dosage: 42 MG, 1X/DAY
     Dates: start: 202408, end: 2024
  2. CAPLYTA [Suspect]
     Active Substance: LUMATEPERONE
     Dosage: 21 MG, 1X/DAY
     Dates: start: 2024, end: 202409

REACTIONS (8)
  - Hypertension [Not Recovered/Not Resolved]
  - Cardiac disorder [Not Recovered/Not Resolved]
  - Cardio-respiratory arrest [Recovered/Resolved]
  - Parkinsonism [Not Recovered/Not Resolved]
  - Speech disorder [Not Recovered/Not Resolved]
  - Weight decreased [Not Recovered/Not Resolved]
  - Gait disturbance [Not Recovered/Not Resolved]
  - Fall [Not Recovered/Not Resolved]

NARRATIVE: CASE EVENT DATE: 20240101
